FAERS Safety Report 4349849-4 (Version None)
Quarter: 2004Q2

REPORT INFORMATION
  Report Type: 
  Country: None (occurrence: None)
  Receive Date: 20040428
  Receipt Date: 20040428
  Transmission Date: 20050107
  Serious: Yes (Death)
  Sender: FDA-Public Use
  Company Number: None

PATIENT
  Age: 83 Year
  Sex: Male
  Weight: 86 kg

DRUGS (17)
  1. IRESSA [Suspect]
     Indication: NON-SMALL CELL LUNG CANCER
     Dosage: 1 PILL PER DAY 250MG
     Dates: start: 20040421, end: 20040426
  2. AUGMENTIN [Concomitant]
  3. ASPIRIN [Concomitant]
  4. LOTRISONE [Concomitant]
  5. LANOXIN [Concomitant]
  6. CARDIZEM [Concomitant]
  7. ARICEPT [Concomitant]
  8. DURAGESIC [Concomitant]
  9. DIFLUCAN [Concomitant]
  10. HAND HELD NEBULIZER [Concomitant]
  11. TOPAMAX [Concomitant]
  12. PREDINOSE [Concomitant]
  13. TYLENOL (CAPLET) [Concomitant]
  14. NORCO [Concomitant]
  15. LASIX [Concomitant]
  16. SODIUM CHLORIDE INJ [Concomitant]
  17. LEVAQUIN [Concomitant]

REACTIONS (1)
  - PLEURAL EFFUSION [None]
